FAERS Safety Report 7687566-3 (Version None)
Quarter: 2011Q3

REPORT INFORMATION
  Report Type: 
  Country: None (occurrence: None)
  Receive Date: 20110811
  Receipt Date: 20110801
  Transmission Date: 20111222
  Serious: Yes (Other)
  Sender: FDA-Public Use
  Company Number: MSTR-NO-1108S-0204

PATIENT
  Age: 67 Year
  Sex: Male
  Weight: 65 kg

DRUGS (4)
  1. ZOLEDRONIC ACID HYDRATE (ZOLEDRONIC ACID) [Concomitant]
  2. OXYCODONE HCL [Concomitant]
  3. METASTRON [Suspect]
     Indication: METASTATIC PAIN
     Dosage: 3.5 ML, SINGLE DOSE, INTRAVENOUS  ; 3.5 ML, SINGLE DOSE, INTRAVENOUS
     Route: 042
     Dates: start: 20091015, end: 20091015
  4. METASTRON [Suspect]
     Indication: METASTATIC PAIN
     Dosage: 3.5 ML, SINGLE DOSE, INTRAVENOUS  ; 3.5 ML, SINGLE DOSE, INTRAVENOUS
     Route: 042
     Dates: start: 20090205, end: 20090205

REACTIONS (3)
  - PROSTATE CANCER METASTATIC [None]
  - ANAEMIA [None]
  - NEOPLASM PROGRESSION [None]
